FAERS Safety Report 19294634 (Version 1)
Quarter: 2021Q2

REPORT INFORMATION
  Report Type: Spontaneous
  Country: US (occurrence: US)
  Receive Date: 20210524
  Receipt Date: 20210524
  Transmission Date: 20210717
  Serious: No
  Sender: FDA-Public Use
  Company Number: US-MISSION PHARMACAL COMPANY-2111868

PATIENT
  Age: 44 Year
  Sex: Female

DRUGS (1)
  1. THIOLA EC [Suspect]
     Active Substance: TIOPRONIN
     Indication: CYSTINURIA
     Route: 048
     Dates: start: 20210505

REACTIONS (6)
  - Back pain [Unknown]
  - Drug ineffective [Unknown]
  - Rash [Recovered/Resolved]
  - Weight increased [Unknown]
  - Headache [Unknown]
  - Blood pressure increased [Unknown]
